FAERS Safety Report 4830397-X (Version None)
Quarter: 2005Q4

REPORT INFORMATION
  Report Type: 
  Country: None (occurrence: None)
  Receive Date: 20051114
  Receipt Date: 20051031
  Transmission Date: 20060501
  Serious: Yes (Hospitalization)
  Sender: FDA-Public Use
  Company Number: 2005US001556

PATIENT
  Age: 8 Year
  Sex: Female
  Weight: 21.2 kg

DRUGS (12)
  1. PROGRAF [Suspect]
     Indication: PROPHYLAXIS AGAINST TRANSPLANT REJECTION
     Dosage: 5.00 MG
  2. ZENAPAX [Suspect]
     Indication: PROPHYLAXIS AGAINST TRANSPLANT REJECTION
     Dosage: 20.00 MG
     Dates: start: 20051022
  3. NORVASC [Concomitant]
  4. SEPTRA DS [Concomitant]
  5. MAGNESIUM OXIDE (MAGNESIUM OXIDE) [Concomitant]
  6. NYSTATIN [Concomitant]
  7. VALCYTE [Concomitant]
  8. PREVACID [Concomitant]
  9. AMPICILLIN [Concomitant]
  10. CELLCEPT [Concomitant]
  11. PREDNISONE [Concomitant]
  12. .. [Concomitant]

REACTIONS (7)
  - CONVULSION [None]
  - DRUG TOXICITY [None]
  - HYPOTENSION [None]
  - NUCLEAR MAGNETIC RESONANCE IMAGING BRAIN ABNORMAL [None]
  - OEDEMA [None]
  - PYELONEPHRITIS [None]
  - URINARY TRACT INFECTION ENTEROCOCCAL [None]
